FAERS Safety Report 9362111 (Version 2)
Quarter: 2013Q3

REPORT INFORMATION
  Report Type: Spontaneous
  Country: US (occurrence: US)
  Receive Date: 20130621
  Receipt Date: 20130903
  Transmission Date: 20140515
  Serious: Yes (Other)
  Sender: FDA-Public Use
  Company Number: US-ASTRAZENECA-2013SE46804

PATIENT
  Sex: Male

DRUGS (1)
  1. CAPRELSA [Suspect]
     Indication: MEDULLARY THYROID CANCER
     Route: 048

REACTIONS (4)
  - Neoplasm progression [Unknown]
  - Carcinoembryonic antigen increased [Recovered/Resolved]
  - Blood calcitonin increased [Recovered/Resolved]
  - Rash [Recovered/Resolved]
